FAERS Safety Report 19190134 (Version 1)
Quarter: 2021Q2

REPORT INFORMATION
  Report Type: Report from Study
  Country: CA (occurrence: CA)
  Receive Date: 20210428
  Receipt Date: 20210428
  Transmission Date: 20210717
  Serious: Yes (Other)
  Sender: FDA-Public Use
  Company Number: CA-PFIZER INC-2021454604

PATIENT
  Age: 62 Year
  Sex: Female

DRUGS (8)
  1. MELOXICAM. [Concomitant]
     Active Substance: MELOXICAM
     Route: 065
  2. VOLTAREN EMULGEL [Concomitant]
     Active Substance: DICLOFENAC DIETHYLAMINE
     Route: 061
  3. METHOTREXATE SODIUM. [Suspect]
     Active Substance: METHOTREXATE SODIUM
     Dosage: 20 MG
     Route: 058
  4. HYDROXYCHLOROQUINE [Concomitant]
     Active Substance: HYDROXYCHLOROQUINE
     Route: 065
  5. PREDNISONE. [Concomitant]
     Active Substance: PREDNISONE
     Route: 065
  6. PNEUMOCOCCAL VACCINE POLYSACCH 23V [Suspect]
     Active Substance: PNEUMOCOCCAL VACCINE, POLYVALENT 23
     Route: 065
  7. LEFLUNOMIDE. [Suspect]
     Active Substance: LEFLUNOMIDE
     Dosage: 20 MG
     Route: 065
  8. NAPROXEN. [Concomitant]
     Active Substance: NAPROXEN
     Route: 065

REACTIONS (19)
  - Trigger finger [Unknown]
  - Arthropathy [Unknown]
  - Cough [Unknown]
  - Laryngitis [Unknown]
  - Oesophageal ulcer [Unknown]
  - Psoriatic arthropathy [Unknown]
  - Throat clearing [Unknown]
  - Arthralgia [Unknown]
  - Asthenia [Unknown]
  - Dyspnoea [Unknown]
  - Joint range of motion decreased [Unknown]
  - Joint stiffness [Unknown]
  - Oropharyngeal discomfort [Unknown]
  - Pulmonary mass [Unknown]
  - Alopecia [Unknown]
  - Chest pain [Unknown]
  - Affective disorder [Unknown]
  - Chest discomfort [Unknown]
  - Haemoptysis [Unknown]
